FAERS Safety Report 10380492 (Version 1)
Quarter: 2014Q3

REPORT INFORMATION
  Report Type: Spontaneous
  Country: US (occurrence: None)
  Receive Date: 20140812
  Receipt Date: 20140812
  Transmission Date: 20150326
  Serious: No
  Sender: FDA-Public Use
  Company Number: None

PATIENT
  Age: 60 Year
  Sex: Male
  Weight: 72.58 kg

DRUGS (1)
  1. OFLOXACIN OTIC [Suspect]
     Active Substance: OFLOXACIN
     Indication: OTITIS EXTERNA
     Dosage: 5 DROPS  TWICE DAILY INTO THE EAR
     Dates: start: 20140806, end: 20140809

REACTIONS (7)
  - Burning sensation [None]
  - Paraesthesia [None]
  - Hypoaesthesia [None]
  - Rash [None]
  - Flushing [None]
  - Pollakiuria [None]
  - Skin discolouration [None]

NARRATIVE: CASE EVENT DATE: 20140809
